FAERS Safety Report 8591616-X (Version None)
Quarter: 2012Q3

REPORT INFORMATION
  Report Type: 
  Country: None (occurrence: None)
  Receive Date: 20120814
  Receipt Date: 20120807
  Transmission Date: 20120928
  Serious: Yes (Other)
  Sender: FDA-Public Use
  Company Number: US-PFIZER INC-2012195507

PATIENT
  Age: 72 Year
  Sex: Male
  Weight: 89.342 kg

DRUGS (10)
  1. LIPITOR [Concomitant]
  2. CARDIZEM [Concomitant]
  3. VITAMIN E [Concomitant]
     Dosage: EVERY OTHER WEEK
  4. VITAMIN D [Concomitant]
  5. SUTENT [Suspect]
     Indication: GASTROINTESTINAL STROMAL TUMOUR
     Dosage: 25 MG, CYCLIC 42 DAY CYCLE (28/14)
     Dates: start: 20091204
  6. SUTENT [Suspect]
     Dosage: 25 MG, 2X/DAY, FOR THE ACTIVE 28 DAYS
     Dates: end: 20120726
  7. COZAAR [Concomitant]
  8. MAGIC MOUTHWASH [Concomitant]
  9. PROSTAT 64 [Concomitant]
     Indication: SUPPLEMENTATION THERAPY
     Dosage: UNK
  10. ARIXTRA [Concomitant]

REACTIONS (8)
  - WEIGHT DECREASED [None]
  - HAEMATOMA [None]
  - DECREASED APPETITE [None]
  - PULMONARY EMBOLISM [None]
  - HAEMOGLOBIN DECREASED [None]
  - DYSGEUSIA [None]
  - BLOOD BLISTER [None]
  - PURPURA [None]
